FAERS Safety Report 5723399-2 (Version None)
Quarter: 2008Q2

REPORT INFORMATION
  Report Type: 
  Country: None (occurrence: None)
  Receive Date: 20080430
  Receipt Date: 20080421
  Transmission Date: 20081010
  Serious: Yes (Other)
  Sender: FDA-Public Use
  Company Number: US-JNJFOC-20080405953

PATIENT
  Sex: Female
  Weight: 64.86 kg

DRUGS (6)
  1. REMICADE [Suspect]
     Route: 042
  2. REMICADE [Suspect]
     Route: 042
  3. REMICADE [Suspect]
     Indication: RHEUMATOID ARTHRITIS
     Route: 042
  4. DIOVAN HCT [Concomitant]
     Indication: HYPERTENSION
     Dosage: 160-12.5
  5. CALCIUM [Concomitant]
  6. ALENDRONATE SODIUM [Concomitant]

REACTIONS (2)
  - LUPUS-LIKE SYNDROME [None]
  - SINUSITIS [None]
